FAERS Safety Report 24419152 (Version 2)
Quarter: 2024Q4

REPORT INFORMATION
  Report Type: Report from Study
  Country: US (occurrence: US)
  Receive Date: 20241009
  Receipt Date: 20241018
  Transmission Date: 20250115
  Serious: No
  Sender: ROCHE
  Company Number: US-ROCHE-3333764

PATIENT
  Age: 27 Year
  Sex: Male

DRUGS (2)
  1. CATHFLO ACTIVASE [Suspect]
     Active Substance: ALTEPLASE
     Indication: Device related thrombosis
     Dosage: DOS: 8 MG ON 04/APR/2023
     Route: 065
  2. PULMOZYME [Suspect]
     Active Substance: DORNASE ALFA
     Indication: Cystic fibrosis
     Dosage: 5MG 60 UNITS
     Route: 065
     Dates: start: 20230404

REACTIONS (2)
  - Off label use [Unknown]
  - No adverse event [Unknown]
